FAERS Safety Report 4415950-X (Version None)
Quarter: 2004Q3

REPORT INFORMATION
  Report Type: 
  Country: None (occurrence: None)
  Receive Date: 20040803
  Receipt Date: 20040803
  Transmission Date: 20050211
  Serious: Yes (Hospitalization)
  Sender: FDA-Public Use
  Company Number: None

PATIENT
  Age: 82 Year
  Sex: Male

DRUGS (1)
  1. ABILIFY [Suspect]

REACTIONS (7)
  - CONFUSIONAL STATE [None]
  - DECREASED ACTIVITY [None]
  - DEHYDRATION [None]
  - DYSARTHRIA [None]
  - DYSPHAGIA [None]
  - EJECTION FRACTION DECREASED [None]
  - PARANOIA [None]
